FAERS Safety Report 8020381-X (Version None)
Quarter: 2012Q1

REPORT INFORMATION
  Report Type: 
  Country: None (occurrence: None)
  Receive Date: 20120103
  Receipt Date: 20111222
  Transmission Date: 20120608
  Serious: Yes (Hospitalization)
  Sender: FDA-Public Use
  Company Number: US-ELI_LILLY_AND_COMPANY-US201112007254

PATIENT
  Age: 37 Year
  Sex: Male

DRUGS (1)
  1. FORTEO [Suspect]
     Indication: MULTIPLE FRACTURES

REACTIONS (1)
  - HOSPITALISATION [None]
